FAERS Safety Report 6613103-8 (Version None)
Quarter: 2010Q1

REPORT INFORMATION
  Report Type: 
  Country: None (occurrence: None)
  Receive Date: 20100223
  Receipt Date: 20100209
  Transmission Date: 20100710
  Serious: Yes (Hospitalization)
  Sender: FDA-Public Use
  Company Number: 2009US003389

PATIENT
  Age: 15 Year
  Sex: Male

DRUGS (26)
  1. AMBISOME [Suspect]
     Indication: CANDIDIASIS
     Dosage: 200 MG, UID/QD, IV DRIP; 125 MG, UID/QD, INV NOS; 2 MG, UID/QD, ORAL
     Route: 041
     Dates: start: 20090624, end: 20090630
  2. AMBISOME [Suspect]
     Indication: CANDIDIASIS
     Dosage: 200 MG, UID/QD, IV DRIP; 125 MG, UID/QD, INV NOS; 2 MG, UID/QD, ORAL
     Route: 041
     Dates: start: 20090814, end: 20090818
  3. AMBISOME [Suspect]
     Indication: CANDIDIASIS
     Dosage: 200 MG, UID/QD, IV DRIP; 125 MG, UID/QD, INV NOS; 2 MG, UID/QD, ORAL
     Route: 041
     Dates: start: 20090814
  4. PROGRAF [Suspect]
     Indication: DRUG USE FOR UNKNOWN INDICATION
     Dosage: 3 MG, UID/QD, IV DRIP
     Route: 041
     Dates: start: 20090615
  5. FUNGUARD (MICAFUNGIN) INJECTION [Suspect]
     Indication: DRUG USE FOR UNKNOWN INDICATION
     Dosage: 150 MG, UID/QD, IV DRIP
     Route: 041
     Dates: start: 20090627
  6. ZOSYN [Suspect]
     Indication: DRUG USE FOR UNKNOWN INDICATION
     Dosage: 3 DF, UID/QD, IV NOS
     Route: 042
     Dates: start: 20090629, end: 20090710
  7. MAXIPIME [Suspect]
     Indication: DRUG USE FOR UNKNOWN INDICATION
     Dosage: 3 DF, UID/QD, IV NOS
     Route: 042
     Dates: start: 20090612, end: 20090628
  8. TARGOCID [Suspect]
     Indication: DRUG USE FOR UNKNOWN INDICATION
     Dosage: 400 MG, UID/QD, IV DRIP
     Route: 041
     Dates: start: 20090612, end: 20090710
  9. CIPROFLOXACIN HCL [Suspect]
     Indication: DRUG USE FOR UNKNOWN INDICATION
     Dosage: 400 MG, UID/QD, IV DRIP
     Route: 041
     Dates: start: 20090624, end: 20090710
  10. METHOTREXATE [Suspect]
     Indication: DRUG USE FOR UNKNOWN INDICATION
     Dosage: 15 MG, UID/QD, IV NOS
     Route: 041
     Dates: start: 20090627, end: 20090627
  11. LEUCOVORIN CALCIUM [Suspect]
     Indication: DRUG USE FOR UNKNOWN INDICATION
     Dosage: 30 MG, UID/QD
     Dates: start: 20090627, end: 20090627
  12. SULFAMETHOXAZOLE AND TRIMETHOPRIM [Concomitant]
  13. SOSEGON (PENTACOZINE) [Concomitant]
  14. GANCICLOVIR [Concomitant]
  15. SOLDEM 1 (GLUCOSE, SODIUM CHLORIDE, SODIUM LACTATE) [Concomitant]
  16. NOVO HEPARIN (HEPARIN) [Concomitant]
  17. VFEND [Concomitant]
  18. MEROPEN (MEROPENEM TRIHYDRATE) [Concomitant]
  19. PLATELETS [Concomitant]
  20. RED BLOOD CELLS [Concomitant]
  21. NEO MINOPHAGEN C  (AMINOACETIC ACID, CYSTEINE HYDROCHLORIDE, GLYCYRRHI [Concomitant]
  22. VICCLOX MEIJI (ACICLOVIR) [Concomitant]
  23. APROVAN KOBAYASHI (NICARDIPINE HYDROCHLORIDE) [Concomitant]
  24. NEUPOGEN [Concomitant]
  25. VENOGLOBULIN (IMMUNOGLOBULIN) [Concomitant]
  26. ITRIZOLE (ITRACONAZLE) [Concomitant]

REACTIONS (8)
  - ASPERGILLOSIS [None]
  - BLOOD BETA-D-GLUCAN INCREASED [None]
  - BONE MARROW TRANSPLANT [None]
  - CANDIDIASIS [None]
  - GRAFT VERSUS HOST DISEASE [None]
  - LUNG NEOPLASM [None]
  - PANCREATITIS [None]
  - PANCREATITIS ACUTE [None]
